FAERS Safety Report 23274379 (Version 1)
Quarter: 2023Q4

REPORT INFORMATION
  Report Type: Spontaneous
  Country: FR (occurrence: FR)
  Receive Date: 20231208
  Receipt Date: 20231208
  Transmission Date: 20240109
  Serious: Yes (Hospitalization, Other)
  Sender: FDA-Public Use
  Company Number: None

PATIENT
  Age: 56 Year
  Sex: Female
  Weight: 54 kg

DRUGS (2)
  1. OPDIVO [Suspect]
     Active Substance: NIVOLUMAB
     Indication: Nodular melanoma
     Route: 042
     Dates: start: 20231005, end: 20231005
  2. YERVOY [Suspect]
     Active Substance: IPILIMUMAB
     Indication: Nodular melanoma
     Route: 042
     Dates: start: 20231005, end: 20231005

REACTIONS (4)
  - Vogt-Koyanagi-Harada disease [Recovered/Resolved]
  - Cholestasis [Recovered/Resolved]
  - Eczema [Recovered/Resolved]
  - Off label use [Unknown]

NARRATIVE: CASE EVENT DATE: 20231011
